FAERS Safety Report 20501240 (Version 9)
Quarter: 2022Q2

REPORT INFORMATION
  Report Type: Report from Study
  Country: DE (occurrence: DE)
  Receive Date: 20220222
  Receipt Date: 20220608
  Transmission Date: 20220721
  Serious: Yes (Hospitalization)
  Sender: FDA-Public Use
  Company Number: DE-NOVARTISPH-NVSC2022DE038751

PATIENT
  Age: 64 Year
  Sex: Male
  Weight: 78.9 kg

DRUGS (21)
  1. RINETERKIB [Suspect]
     Active Substance: RINETERKIB
     Indication: Colorectal cancer
     Dosage: 400 MG, QD
     Route: 048
     Dates: start: 20220208, end: 20220218
  2. RINETERKIB [Suspect]
     Active Substance: RINETERKIB
     Dosage: 250 MG, QD
     Route: 048
     Dates: start: 20220308
  3. DABRAFENIB [Suspect]
     Active Substance: DABRAFENIB
     Indication: Colorectal cancer
     Dosage: 150 MG, BID
     Route: 048
     Dates: start: 20220208, end: 20220218
  4. DABRAFENIB [Suspect]
     Active Substance: DABRAFENIB
     Dosage: 100 MG, QD
     Route: 048
     Dates: start: 20220308
  5. TAMSULOSIN HYDROCHLORIDE [Concomitant]
     Active Substance: TAMSULOSIN HYDROCHLORIDE
     Indication: Benign prostatic hyperplasia
     Dosage: UNK
     Route: 065
     Dates: start: 202102
  6. ENOXAPARIN SODIUM [Concomitant]
     Active Substance: ENOXAPARIN SODIUM
     Indication: Thrombosis prophylaxis
     Dosage: UNK
     Route: 065
     Dates: start: 20220218, end: 20220301
  7. CODEINE [Concomitant]
     Active Substance: CODEINE
     Indication: Cough
     Dosage: DROP
     Route: 065
     Dates: start: 20220222, end: 20220226
  8. LOPERAMIDE [Concomitant]
     Active Substance: LOPERAMIDE
     Indication: Diarrhoea
     Dosage: UNK
     Route: 065
     Dates: start: 20220208
  9. METAMIZOLE [Concomitant]
     Active Substance: METAMIZOLE
     Indication: Abdominal pain
     Dosage: UNK
     Route: 065
     Dates: start: 20220208
  10. METAMIZOLE [Concomitant]
     Active Substance: METAMIZOLE
     Dosage: ALSO 2 ML
     Route: 065
     Dates: start: 20220218, end: 20220301
  11. PANTOPRAZOLE [Concomitant]
     Active Substance: PANTOPRAZOLE
     Indication: Gastritis prophylaxis
     Dosage: UNK
     Route: 065
     Dates: start: 20220220, end: 20220222
  12. METHYLPREDNISOLONE ACEPONATE [Concomitant]
     Active Substance: METHYLPREDNISOLONE ACEPONATE
     Indication: Rash
     Dosage: UNK
     Route: 065
     Dates: start: 20220220, end: 20220227
  13. MOMETASONE FUROATE [Concomitant]
     Active Substance: MOMETASONE FUROATE
     Indication: Rash
     Dosage: UNK
     Route: 065
     Dates: start: 20220217, end: 20220218
  14. XYLOCAINE [Concomitant]
     Active Substance: LIDOCAINE HYDROCHLORIDE
     Indication: Anaesthesia
     Dosage: 1%, 2%
     Route: 065
     Dates: start: 20220203, end: 20220203
  15. LACTULOSE [Concomitant]
     Active Substance: LACTULOSE
     Indication: Constipation prophylaxis
     Dosage: UNK
     Route: 065
     Dates: start: 20220224, end: 20220301
  16. METOCLOPRAMIDE [Concomitant]
     Active Substance: METOCLOPRAMIDE
     Indication: Prophylaxis of nausea and vomiting
     Dosage: UNK
     Route: 065
     Dates: start: 20220224
  17. DIMENHYDRINATE [Concomitant]
     Active Substance: DIMENHYDRINATE
     Indication: Prophylaxis of nausea and vomiting
     Dosage: UNK
     Route: 065
     Dates: start: 20220224, end: 20220301
  18. MOVICOL [Concomitant]
     Active Substance: POLYETHYLENE GLYCOL 3350\POTASSIUM CHLORIDE\SODIUM BICARBONATE\SODIUM CHLORIDE
     Indication: Constipation prophylaxis
     Dosage: UNK
     Route: 065
     Dates: start: 20220224
  19. CALCIUM [Concomitant]
     Active Substance: CALCIUM
     Indication: Prophylaxis
     Dosage: UNK
     Route: 065
     Dates: start: 20220226
  20. ZYPREXA [Concomitant]
     Active Substance: OLANZAPINE
     Indication: Decreased appetite
     Dosage: UNK
     Route: 065
     Dates: start: 20220224, end: 20220307
  21. UNSPECIFIED INGREDIENT [Concomitant]
     Active Substance: UNSPECIFIED INGREDIENT
     Indication: Vomiting
     Dosage: UNK
     Route: 065
     Dates: start: 20220218, end: 20220224

REACTIONS (2)
  - Asthenia [Recovering/Resolving]
  - Gait disturbance [Recovered/Resolved]

NARRATIVE: CASE EVENT DATE: 20220217
